FAERS Safety Report 11096231 (Version 1)
Quarter: 2015Q2

REPORT INFORMATION
  Report Type: Spontaneous
  Country: US (occurrence: US)
  Receive Date: 20150507
  Receipt Date: 20150507
  Transmission Date: 20150821
  Serious: Yes (Hospitalization, Other)
  Sender: FDA-Public Use
  Company Number: US-AUROBINDO-AUR-APL-2015-04003

PATIENT
  Age: 78 Year
  Sex: Female

DRUGS (3)
  1. ALPRAZOLAM0.5MG [Suspect]
     Active Substance: ALPRAZOLAM
     Indication: ANXIETY
  2. PROPOFOL. [Concomitant]
     Active Substance: PROPOFOL
     Indication: PRODUCT USED FOR UNKNOWN INDICATION
     Dosage: UNK
     Route: 065
  3. ALPRAZOLAM0.5MG [Suspect]
     Active Substance: ALPRAZOLAM
     Indication: DEPRESSION
     Dosage: 0.5 MG, 3 TIMES A DAY
     Route: 065

REACTIONS (11)
  - Staring [Recovered/Resolved]
  - Locked-in syndrome [Recovered/Resolved]
  - Negativism [Unknown]
  - Catatonia [Unknown]
  - Mental status changes [Recovered/Resolved]
  - Withdrawal syndrome [Unknown]
  - Hypertensive crisis [Unknown]
  - Mutism [Recovered/Resolved]
  - Waxy flexibility [Recovered/Resolved]
  - Pneumonia [Not Recovered/Not Resolved]
  - Condition aggravated [Recovered/Resolved]
